FAERS Safety Report 22624270 (Version 4)
Quarter: 2024Q1

REPORT INFORMATION
  Report Type: Spontaneous
  Country: US (occurrence: US)
  Receive Date: 20230621
  Receipt Date: 20240221
  Transmission Date: 20240409
  Serious: No
  Sender: FDA-Public Use
  Company Number: US-BEH-2023159975

PATIENT
  Sex: Female

DRUGS (15)
  1. HIZENTRA [Suspect]
     Active Substance: HUMAN IMMUNOGLOBULIN G
     Indication: Immunodeficiency
     Dosage: 14 GRAM, QOW
     Route: 058
     Dates: start: 20220819
  2. CYCLOBENZAPRINE [Concomitant]
     Active Substance: CYCLOBENZAPRINE
  3. DICLOFENAC [Concomitant]
     Active Substance: DICLOFENAC
  4. FORTEO [Concomitant]
     Active Substance: TERIPARATIDE
  5. ACETAMINOPHEN\OXYCODONE HYDROCHLORIDE [Concomitant]
     Active Substance: ACETAMINOPHEN\OXYCODONE HYDROCHLORIDE
  6. ACETAMINOPHEN\OXYCODONE HYDROCHLORIDE\OXYCODONE TEREPHTHALATE [Concomitant]
     Active Substance: ACETAMINOPHEN\OXYCODONE HYDROCHLORIDE\OXYCODONE TEREPHTHALATE
  7. POTASSIUM [Concomitant]
     Active Substance: POTASSIUM
  8. OMEPRAZOLE [Concomitant]
     Active Substance: OMEPRAZOLE
  9. STELARA [Concomitant]
     Active Substance: USTEKINUMAB
  10. STELARA [Concomitant]
     Active Substance: USTEKINUMAB
  11. TAPAZOLE [Concomitant]
     Active Substance: METHIMAZOLE
  12. VITAMIN D NOS [Concomitant]
     Active Substance: VITAMIN D NOS
  13. FLUOXETINE [Concomitant]
     Active Substance: FLUOXETINE HYDROCHLORIDE
  14. METHIMAZOLE [Concomitant]
     Active Substance: METHIMAZOLE
  15. PENTOXIFYLLINE [Concomitant]
     Active Substance: PENTOXIFYLLINE

REACTIONS (25)
  - Fatigue [Unknown]
  - Headache [Unknown]
  - Arthralgia [Unknown]
  - Impaired quality of life [Not Recovered/Not Resolved]
  - Weight fluctuation [Not Recovered/Not Resolved]
  - Diarrhoea [Not Recovered/Not Resolved]
  - Abdominal pain [Not Recovered/Not Resolved]
  - Fatigue [Not Recovered/Not Resolved]
  - Arthralgia [Not Recovered/Not Resolved]
  - Upper respiratory tract infection [Not Recovered/Not Resolved]
  - Ill-defined disorder [Not Recovered/Not Resolved]
  - Weight fluctuation [Not Recovered/Not Resolved]
  - Diarrhoea [Not Recovered/Not Resolved]
  - Abdominal pain [Not Recovered/Not Resolved]
  - Impaired quality of life [Not Recovered/Not Resolved]
  - Infection [Not Recovered/Not Resolved]
  - Fatigue [Not Recovered/Not Resolved]
  - Headache [Not Recovered/Not Resolved]
  - Arthralgia [Not Recovered/Not Resolved]
  - Rash [Not Recovered/Not Resolved]
  - Skin irritation [Not Recovered/Not Resolved]
  - Migraine [Not Recovered/Not Resolved]
  - Hypoaesthesia [Unknown]
  - Limb injury [Unknown]
  - Wound [Unknown]
